FAERS Safety Report 7059904-6 (Version None)
Quarter: 2010Q4

REPORT INFORMATION
  Report Type: 
  Country: None (occurrence: None)
  Receive Date: 20101025
  Receipt Date: 20101021
  Transmission Date: 20110411
  Serious: Yes (Death)
  Sender: FDA-Public Use
  Company Number: PHHY2010US71093

PATIENT
  Sex: Male
  Weight: 80 kg

DRUGS (1)
  1. EXJADE [Suspect]
     Indication: BLOOD IRON ABNORMAL
     Dosage: 1500 MG DAILY
     Route: 048
     Dates: start: 20090602

REACTIONS (1)
  - DEATH [None]
